FAERS Safety Report 6724414-X (Version None)
Quarter: 2010Q2

REPORT INFORMATION
  Report Type: 
  Country: None (occurrence: None)
  Receive Date: 20100513
  Receipt Date: 20100506
  Transmission Date: 20101027
  Serious: Yes (Other)
  Sender: FDA-Public Use
  Company Number: JP-PFIZER INC-2010057114

PATIENT
  Age: 82 Year
  Sex: Male

DRUGS (2)
  1. LIPITOR [Suspect]
     Indication: HYPERLIPIDAEMIA
     Dosage: 10 MG, EVERY 2 OR 3 DAYS
     Route: 048
  2. HARNAL [Concomitant]
     Dosage: UNK

REACTIONS (2)
  - CHROMATURIA [None]
  - GROIN PAIN [None]
